FAERS Safety Report 12600236 (Version 2)
Quarter: 2016Q4

REPORT INFORMATION
  Report Type: Report from Study
  Country: None (occurrence: US)
  Receive Date: 20160727
  Receipt Date: 20161013
  Transmission Date: 20170207
  Serious: Yes (Other)
  Sender: FDA-Public Use
  Company Number: US-ABBVIE-16K-163-1684333-00

PATIENT
  Age: 28 Year
  Sex: Male

DRUGS (4)
  1. HUMIRA [Suspect]
     Active Substance: ADALIMUMAB
     Indication: CROHN^S DISEASE
     Route: 058
  2. HUMIRA [Suspect]
     Active Substance: ADALIMUMAB
     Dosage: DAY SEVEN
     Route: 058
     Dates: start: 20160717, end: 20160717
  3. HUMIRA [Suspect]
     Active Substance: ADALIMUMAB
     Route: 058
     Dates: start: 20160731
  4. HUMIRA [Suspect]
     Active Substance: ADALIMUMAB
     Dosage: DAY ONE
     Route: 058
     Dates: start: 20160710, end: 20160710

REACTIONS (6)
  - Frequent bowel movements [Unknown]
  - Diarrhoea [Recovering/Resolving]
  - Intestinal resection [Unknown]
  - Abnormal faeces [Unknown]
  - Abdominal pain upper [Unknown]
  - Upper respiratory tract infection [Unknown]

NARRATIVE: CASE EVENT DATE: 2016
